FAERS Safety Report 7363276-7 (Version None)
Quarter: 2011Q1

REPORT INFORMATION
  Report Type: 
  Country: None (occurrence: None)
  Receive Date: 20110321
  Receipt Date: 20110308
  Transmission Date: 20110831
  Serious: Yes (Hospitalization)
  Sender: FDA-Public Use
  Company Number: CA-JNJFOC-20110305185

PATIENT
  Sex: Female
  Weight: 95.5 kg

DRUGS (1)
  1. REMICADE [Suspect]
     Indication: CROHN'S DISEASE
     Route: 042

REACTIONS (3)
  - DIARRHOEA HAEMORRHAGIC [None]
  - HOSPITALISATION [None]
  - ABDOMINAL PAIN [None]
